FAERS Safety Report 7619546-8 (Version None)
Quarter: 2011Q3

REPORT INFORMATION
  Report Type: 
  Country: None (occurrence: None)
  Receive Date: 20110719
  Receipt Date: 20110707
  Transmission Date: 20111222
  Serious: Yes (Hospitalization)
  Sender: FDA-Public Use
  Company Number: US-JNJFOC-20110704161

PATIENT
  Sex: Male

DRUGS (3)
  1. PREDNISONE [Concomitant]
     Indication: ILL-DEFINED DISORDER
  2. SIMPONI [Suspect]
     Indication: ARTHRITIS
     Route: 058
     Dates: start: 20110101, end: 20110101
  3. METFORMIN HCL [Concomitant]
     Indication: ILL-DEFINED DISORDER

REACTIONS (2)
  - INFECTION [None]
  - OEDEMA PERIPHERAL [None]
